FAERS Safety Report 6014952-X (Version None)
Quarter: 2008Q4

REPORT INFORMATION
  Report Type: 
  Country: None (occurrence: None)
  Receive Date: 20081219
  Receipt Date: 20081210
  Transmission Date: 20090506
  Serious: Yes (Hospitalization, Other)
  Sender: FDA-Public Use
  Company Number: US-AMGEN-QUU323291

PATIENT
  Sex: Male

DRUGS (3)
  1. ENBREL [Suspect]
     Indication: RHEUMATOID ARTHRITIS
  2. METHOTREXATE [Concomitant]
  3. PREDNISONE TAB [Concomitant]

REACTIONS (2)
  - OESOPHAGEAL VARICES HAEMORRHAGE [None]
  - TIBIA FRACTURE [None]
